FAERS Safety Report 8477061-6 (Version None)
Quarter: 2012Q2

REPORT INFORMATION
  Report Type: 
  Country: None (occurrence: None)
  Receive Date: 20120629
  Receipt Date: 20120626
  Transmission Date: 20120825
  Serious: No
  Sender: FDA-Public Use
  Company Number: US-PFIZER INC-2012153674

PATIENT
  Sex: Female
  Weight: 77.098 kg

DRUGS (7)
  1. ADVIL PM [Suspect]
     Indication: SLEEP DISORDER
  2. ADVIL PM [Suspect]
     Indication: GINGIVAL INFECTION
  3. ADVIL PM [Suspect]
     Indication: PAIN IN EXTREMITY
     Dosage: TWO CAPSULES OF 200/38MG AS A SINGLE DOSE
     Dates: start: 20120625
  4. SIMVASTATIN [Concomitant]
     Indication: BLOOD CHOLESTEROL INCREASED
     Dosage: HALF A TABLET OF 80MG DAILY
  5. ADVIL PM [Suspect]
     Indication: MUSCULOSKELETAL PAIN
  6. METFORMIN [Concomitant]
     Indication: DIABETES MELLITUS
     Dosage: 500 MG, 2X/DAY
  7. LISINOPRIL [Concomitant]
     Indication: HYPERTENSION
     Dosage: 20 MG, DAILY

REACTIONS (2)
  - INSOMNIA [None]
  - DRUG INEFFECTIVE [None]
